FAERS Safety Report 5648535-8 (Version None)
Quarter: 2008Q1

REPORT INFORMATION
  Report Type: 
  Country: None (occurrence: None)
  Receive Date: 20080229
  Receipt Date: 20080215
  Transmission Date: 20080703
  Serious: Yes (Other)
  Sender: FDA-Public Use
  Company Number: S08-CAN-00733-01

PATIENT
  Sex: Female
  Weight: 65 kg

DRUGS (6)
  1. CELEXA [Suspect]
     Indication: DEPRESSION
     Dosage: 10 MG QD PO
     Route: 048
     Dates: start: 20020101, end: 20050101
  2. CELEXA [Suspect]
     Indication: MENOPAUSAL SYMPTOMS
     Dosage: 10 MG QD PO
     Route: 048
     Dates: start: 20020101, end: 20050101
  3. CELEXA [Suspect]
     Indication: DEPRESSION
     Dosage: 20 MG QD PO
     Route: 048
     Dates: start: 20050101, end: 20070901
  4. CELEXA [Suspect]
     Indication: MENOPAUSAL SYMPTOMS
     Dosage: 20 MG QD PO
     Route: 048
     Dates: start: 20050101, end: 20070901
  5. RABEPRAZOLE SODIUM [Concomitant]
  6. LIPITOR [Concomitant]

REACTIONS (9)
  - CONDITION AGGRAVATED [None]
  - DIARRHOEA [None]
  - DYSPEPSIA [None]
  - GASTROOESOPHAGEAL REFLUX DISEASE [None]
  - HELICOBACTER INFECTION [None]
  - HIATUS HERNIA [None]
  - INCORRECT DOSE ADMINISTERED [None]
  - TREATMENT NONCOMPLIANCE [None]
  - WEIGHT INCREASED [None]
